FAERS Safety Report 7051743-5 (Version None)
Quarter: 2010Q4

REPORT INFORMATION
  Report Type: 
  Country: None (occurrence: None)
  Receive Date: 20101019
  Receipt Date: 20101006
  Transmission Date: 20110411
  Serious: Yes (Hospitalization)
  Sender: FDA-Public Use
  Company Number: PHHY2010FR67435

PATIENT
  Sex: Female

DRUGS (11)
  1. EXELON [Suspect]
     Indication: DEMENTIA ALZHEIMER'S TYPE
     Dosage: 4.6 MG/24 HR
     Route: 062
     Dates: end: 20100901
  2. HALDOL [Suspect]
     Dosage: 47 DROPS/DAY
  3. HALDOL [Suspect]
     Dosage: 22 ORAL DROPS/DAY
     Dates: start: 20100913
  4. SERESTA [Suspect]
     Dosage: 10 MG/DAY
     Route: 048
  5. SERESTA [Suspect]
     Dosage: 5 MG/DAY
     Route: 048
     Dates: start: 20100913
  6. ESCITALOPRAM [Suspect]
     Route: 048
  7. ESCITALOPRAM [Suspect]
     Dosage: 5 MG/DAY
     Route: 048
     Dates: start: 20100913
  8. SINGULAIR [Concomitant]
     Indication: ASTHMA
     Dosage: 10 MG/DAY
     Route: 048
  9. PREVISCAN [Concomitant]
     Indication: THROMBOSIS
     Dosage: 20 MG
  10. TRIATEC [Concomitant]
     Dosage: 5 MG/DAY
  11. SYMBICORT [Concomitant]
     Indication: RESPIRATORY DISORDER
     Dosage: 400/12 MCG/DOSE, 1 INHALATION BID

REACTIONS (11)
  - AGITATION [None]
  - AKINESIA [None]
  - BLOOD PRESSURE SYSTOLIC INCREASED [None]
  - COMMUNICATION DISORDER [None]
  - DYSSTASIA [None]
  - FALL [None]
  - FEELING ABNORMAL [None]
  - GAIT DISTURBANCE [None]
  - HAEMATOMA [None]
  - HEART RATE INCREASED [None]
  - INTERNATIONAL NORMALISED RATIO INCREASED [None]
